FAERS Safety Report 5299184-5 (Version None)
Quarter: 2007Q2

REPORT INFORMATION
  Report Type: 
  Country: None (occurrence: None)
  Receive Date: 20070410
  Receipt Date: 20060921
  Transmission Date: 20071010
  Serious: Yes (Hospitalization)
  Sender: FDA-Public Use
  Company Number: BDI-008663

PATIENT
  Age: 47 Year
  Sex: Female

DRUGS (1)
  1. ISOVUE-370 [Suspect]
     Indication: COMPUTERISED TOMOGRAM THORAX
     Dosage: 100 ML ONCE IV
     Route: 042
     Dates: start: 20060920, end: 20060920

REACTIONS (4)
  - COMPARTMENT SYNDROME [None]
  - DRUG ADMINISTRATION ERROR [None]
  - EXTRAVASATION [None]
  - IMPAIRED HEALING [None]
